FAERS Safety Report 10438702 (Version 1)
Quarter: 2014Q3

REPORT INFORMATION
  Report Type: Spontaneous
  Country: US (occurrence: US)
  Receive Date: 20140908
  Receipt Date: 20140908
  Transmission Date: 20150326
  Serious: No
  Sender: FDA-Public Use
  Company Number: US-BRISTOL-MYERS SQUIBB COMPANY-19866417

PATIENT
  Sex: Male

DRUGS (2)
  1. CLOZAPINE. [Concomitant]
     Active Substance: CLOZAPINE
     Dosage: 300MG:15YRS?3-4 YEARS AGO- REDUCED TO 150MG
  2. ABILIFY [Suspect]
     Active Substance: ARIPIPRAZOLE
     Indication: PSYCHOTIC DISORDER
     Dosage: 1 DF = 1 TABS?3-4 YRS AGO?ONEMORE TABS ON 27NOV2013
     Dates: start: 20131126

REACTIONS (1)
  - Expired product administered [Unknown]
